FAERS Safety Report 4559220-8 (Version None)
Quarter: 2005Q1

REPORT INFORMATION
  Report Type: 
  Country: None (occurrence: None)
  Receive Date: 20050124
  Receipt Date: 20050114
  Transmission Date: 20050727
  Serious: Yes (Other)
  Sender: FDA-Public Use
  Company Number: HU-MERCK-0501USA02738

PATIENT

DRUGS (1)
  1. ELSPAR [Suspect]
     Route: 042

REACTIONS (6)
  - ANTITHROMBIN III DECREASED [None]
  - CEREBRAL VENOUS THROMBOSIS [None]
  - COAGULATION TEST ABNORMAL [None]
  - HEMIPARESIS [None]
  - HYPOCOAGULABLE STATE [None]
  - SIMPLE PARTIAL SEIZURES [None]
